FAERS Safety Report 8571472-6 (Version None)
Quarter: 2012Q3

REPORT INFORMATION
  Report Type: 
  Country: None (occurrence: None)
  Receive Date: 20120806
  Receipt Date: 20120802
  Transmission Date: 20120928
  Serious: No
  Sender: FDA-Public Use
  Company Number: US-B.I. PHARMACEUTICALS,INC./RIDGEFIELD-2012-BP-17468BP

PATIENT

DRUGS (1)
  1. TRADJENTA [Suspect]

REACTIONS (2)
  - BLOOD GLUCOSE DECREASED [None]
  - NAUSEA [None]
